FAERS Safety Report 8170202-X (Version None)
Quarter: 2012Q1

REPORT INFORMATION
  Report Type: 
  Country: None (occurrence: None)
  Receive Date: 20120228
  Receipt Date: 20120213
  Transmission Date: 20120608
  Serious: Yes (Other)
  Sender: FDA-Public Use
  Company Number: PHHY2012IT014366

PATIENT
  Age: 32 Year
  Sex: Female

DRUGS (1)
  1. EXJADE [Suspect]
     Indication: IRON OVERLOAD
     Route: 048
     Dates: start: 20090101, end: 20110622

REACTIONS (4)
  - NORMAL NEWBORN [None]
  - PRE-ECLAMPSIA [None]
  - LIVER DISORDER [None]
  - MATERNAL EXPOSURE DURING PREGNANCY [None]
